FAERS Safety Report 6309079-3 (Version None)
Quarter: 2009Q3

REPORT INFORMATION
  Report Type: 
  Country: None (occurrence: None)
  Receive Date: 20090814
  Receipt Date: 20071113
  Transmission Date: 20100115
  Serious: No
  Sender: FDA-Public Use
  Company Number: US-ASTRAZENECA-2007UW08713

PATIENT
  Age: 16715 Day
  Sex: Male
  Weight: 88.9 kg

DRUGS (3)
  1. SEROQUEL [Suspect]
     Indication: BIPOLAR DISORDER
     Route: 048
     Dates: start: 20030710
  2. SEROQUEL [Suspect]
     Route: 048
     Dates: start: 20041012
  3. WELLBUTRIN [Concomitant]
     Dates: start: 20041012

REACTIONS (2)
  - DIABETES MELLITUS [None]
  - HYPERGLYCAEMIA [None]
